FAERS Safety Report 13365338 (Version 1)
Quarter: 2017Q1

REPORT INFORMATION
  Report Type: Spontaneous
  Country: US (occurrence: US)
  Receive Date: 20170323
  Receipt Date: 20170323
  Transmission Date: 20170429
  Serious: No
  Sender: FDA-Public Use
  Company Number: US-ALLERGAN-2017-000177

PATIENT
  Sex: Female

DRUGS (1)
  1. ESTRACE [Suspect]
     Active Substance: ESTRADIOL
     Indication: VAGINAL PESSARY INSERTION
     Dosage: 2 G, TWICE, A WEEK APART
     Route: 065
     Dates: start: 201611

REACTIONS (3)
  - Product use issue [Unknown]
  - Breast tenderness [Unknown]
  - Breast enlargement [Unknown]

NARRATIVE: CASE EVENT DATE: 201611
